FAERS Safety Report 15157609 (Version 1)
Quarter: 2018Q3

REPORT INFORMATION
  Report Type: Spontaneous
  Country: US (occurrence: US)
  Receive Date: 20180620
  Receipt Date: 20180620
  Transmission Date: 20181010
  Serious: Yes (Life-Threatening, Hospitalization, Disabling, Other)
  Sender: FDA-Public Use
  Company Number: None

PATIENT
  Age: 54 Year
  Sex: Female
  Weight: 74.25 kg

DRUGS (14)
  1. COQ10 [Concomitant]
     Active Substance: UBIDECARENONE
  2. TRANSDERM SCOPOLAMINE PATCH [Concomitant]
  3. ASPIRIN. [Concomitant]
     Active Substance: ASPIRIN
  4. OMEGA 3 [Concomitant]
     Active Substance: OMEGA-3 FATTY ACIDS
  5. ALPHA LIPOIC ACID [Concomitant]
     Active Substance: .ALPHA.-LIPOIC ACID
  6. METHOTREXATE. [Suspect]
     Active Substance: METHOTREXATE
     Indication: RHEUMATOID ARTHRITIS
     Dosage: ?          OTHER FREQUENCY:8 PILLS ONCE WEEKL;?
     Route: 048
     Dates: start: 20150905, end: 20170505
  7. VITAMIN B12 [Concomitant]
     Active Substance: CYANOCOBALAMIN
  8. VITAMIN D3 [Concomitant]
     Active Substance: CHOLECALCIFEROL
  9. ENBREL [Suspect]
     Active Substance: ETANERCEPT
     Indication: RHEUMATOID ARTHRITIS
     Dosage: ?          QUANTITY:4 INJECTION(S);OTHER FREQUENCY:ONE INJECTION WEEK;?
     Route: 058
     Dates: start: 20161005, end: 20171102
  10. ZYRTEC [Concomitant]
     Active Substance: CETIRIZINE HYDROCHLORIDE
  11. ZOFRAN [Concomitant]
     Active Substance: ONDANSETRON HYDROCHLORIDE
  12. BUTAL?ACET?CAFF [Concomitant]
  13. KEPPRA [Concomitant]
     Active Substance: LEVETIRACETAM
  14. LEXAPRO [Concomitant]
     Active Substance: ESCITALOPRAM OXALATE

REACTIONS (8)
  - Vertigo [None]
  - Nystagmus [None]
  - Stenosis [None]
  - Arthralgia [None]
  - Blood cholesterol increased [None]
  - Seizure [None]
  - Vomiting [None]
  - Respiratory failure [None]

NARRATIVE: CASE EVENT DATE: 20170418
